FAERS Safety Report 9917087 (Version 4)
Quarter: 2014Q2

REPORT INFORMATION
  Report Type: Report from Study
  Country: IT (occurrence: IT)
  Receive Date: 20140221
  Receipt Date: 20140508
  Transmission Date: 20141212
  Serious: Yes (Hospitalization, Other)
  Sender: FDA-Public Use
  Company Number: IT-ABBVIE-14P-083-1193173-00

PATIENT
  Age: 74 Year
  Sex: Male
  Weight: 70 kg

DRUGS (22)
  1. PREDNISONE [Suspect]
     Indication: UVEITIS
     Route: 048
     Dates: start: 20131112, end: 20131125
  2. PREDNISONE [Suspect]
     Route: 048
     Dates: start: 20131126, end: 20131202
  3. PREDNISONE [Suspect]
     Route: 048
     Dates: start: 20131203, end: 20131216
  4. PREDNISONE [Suspect]
     Route: 048
     Dates: start: 20131217, end: 20131230
  5. PREDNISONE [Suspect]
     Route: 048
     Dates: start: 20131231, end: 20140107
  6. ASPIRINA [Concomitant]
     Indication: PYREXIA
     Route: 048
     Dates: start: 20140112, end: 20140114
  7. MUCOSOLVAN [Concomitant]
     Indication: BRONCHITIS
     Route: 048
     Dates: start: 20140114, end: 20140119
  8. FIDATO [Concomitant]
     Indication: BRONCHITIS
     Route: 030
     Dates: start: 20140114, end: 20140119
  9. MEDEOROS [Concomitant]
     Indication: OSTEOPOROSIS
     Route: 048
     Dates: start: 1993
  10. DIBASE [Concomitant]
     Indication: OSTEOPOROSIS
     Route: 048
     Dates: start: 1993
  11. LANSOZOL [Concomitant]
     Indication: GASTROOESOPHAGEAL REFLUX DISEASE
     Route: 048
     Dates: start: 2010
  12. LANSOZOL [Concomitant]
     Route: 048
     Dates: start: 20140130
  13. CARDIOVASC [Concomitant]
     Indication: HYPERTENSION
     Route: 048
     Dates: start: 1983
  14. ATENOL [Concomitant]
     Indication: HYPERTENSION
     Route: 048
     Dates: start: 1983, end: 20140129
  15. ATENOL [Concomitant]
     Dates: start: 20140130
  16. NEO-LOTAN PLUS [Concomitant]
     Indication: DIURETIC THERAPY
     Route: 048
     Dates: start: 1993
  17. DOVOBET [Concomitant]
     Indication: PSORIASIS
     Dosage: 0.5 MG/G
     Route: 061
     Dates: start: 1993
  18. TACHIPIRINA [Concomitant]
     Indication: PYREXIA
     Route: 048
     Dates: start: 20140109, end: 20140112
  19. CICLOSPORINE [Concomitant]
     Indication: UVEITIS
     Route: 048
     Dates: start: 20100726
  20. DELTACORTENE [Concomitant]
     Indication: PSORIATIC ARTHROPATHY
     Route: 048
     Dates: start: 20131007, end: 20131111
  21. DELTACORTENE [Concomitant]
     Route: 048
     Dates: start: 20140130
  22. HUMIRA [Suspect]
     Indication: UVEITIS
     Route: 058
     Dates: start: 20131112, end: 20131231

REACTIONS (3)
  - Pleurisy [Not Recovered/Not Resolved]
  - Pneumonia legionella [Not Recovered/Not Resolved]
  - Bronchitis [Not Recovered/Not Resolved]
